FAERS Safety Report 5752381-4 (Version None)
Quarter: 2008Q2

REPORT INFORMATION
  Report Type: 
  Country: None (occurrence: None)
  Receive Date: 20080529
  Receipt Date: 20080528
  Transmission Date: 20081010
  Serious: Yes (Hospitalization)
  Sender: FDA-Public Use
  Company Number: A0696338B

PATIENT
  Age: 11 Month
  Sex: Male
  Weight: 8.6 kg

DRUGS (4)
  1. BLINDED VACCINE [Suspect]
     Route: 030
     Dates: start: 20071231, end: 20071231
  2. AMOXICILLIN [Suspect]
     Route: 048
     Dates: start: 20080512, end: 20080514
  3. HEPATITIS B VACCINE [Concomitant]
     Route: 030
     Dates: start: 20070625, end: 20070625
  4. TICE BCG [Concomitant]
     Route: 023
     Dates: start: 20070625, end: 20070625

REACTIONS (7)
  - DEHYDRATION [None]
  - DIARRHOEA [None]
  - GASTROENTERITIS [None]
  - HEAD INJURY [None]
  - IRRITABILITY [None]
  - PYREXIA [None]
  - VOMITING [None]
